FAERS Safety Report 10285484 (Version 1)
Quarter: 2014Q3

REPORT INFORMATION
  Report Type: Spontaneous
  Country: CA (occurrence: CA)
  Receive Date: 20140709
  Receipt Date: 20140709
  Transmission Date: 20150326
  Serious: Yes (Disabling)
  Sender: FDA-Public Use
  Company Number: CA-AMGEN INC.-CANSP2014050152

PATIENT
  Age: 64 Year
  Sex: Female
  Weight: 53.52 kg

DRUGS (11)
  1. ALREX                              /00595201/ [Concomitant]
     Route: 047
  2. PMS-METOPROLOL-L [Concomitant]
  3. SYNTHROID [Concomitant]
     Active Substance: LEVOTHYROXINE SODIUM
  4. HYDROCHLOROTHIAZIDE. [Concomitant]
     Active Substance: HYDROCHLOROTHIAZIDE
  5. TOBRADEX [Concomitant]
     Active Substance: DEXAMETHASONE\TOBRAMYCIN
  6. PROLIA [Suspect]
     Active Substance: DENOSUMAB
     Indication: PRODUCT USED FOR UNKNOWN INDICATION
     Dosage: 60 MG, Q6MO
     Route: 065
  7. VALSARTAN. [Concomitant]
     Active Substance: VALSARTAN
  8. APO-CLONAZEPAM [Concomitant]
     Active Substance: CLONAZEPAM
  9. ASA [Concomitant]
     Active Substance: ASPIRIN
  10. FLOVENT HFA [Concomitant]
     Active Substance: FLUTICASONE PROPIONATE
  11. SALBUTAMOL [Concomitant]
     Active Substance: ALBUTEROL
     Route: 045

REACTIONS (3)
  - Conjunctivitis [Unknown]
  - Hypersensitivity [Unknown]
  - Dry eye [Unknown]
